FAERS Safety Report 4818000-6 (Version None)
Quarter: 2005Q4

REPORT INFORMATION
  Report Type: 
  Country: None (occurrence: None)
  Receive Date: 20051102
  Receipt Date: 20051025
  Transmission Date: 20060501
  Serious: Yes (Hospitalization)
  Sender: FDA-Public Use
  Company Number: JP-ROCHE-422696

PATIENT
  Age: 25 Year
  Sex: Female

DRUGS (1)
  1. PEGASYS [Suspect]
     Dosage: THERAPY DURATION REPORTED AS 24 WEEKS
     Route: 058

REACTIONS (1)
  - ANAEMIA HAEMOLYTIC AUTOIMMUNE [None]
